FAERS Safety Report 12197106 (Version 10)
Quarter: 2016Q3

REPORT INFORMATION
  Report Type: Spontaneous
  Country: US (occurrence: US)
  Receive Date: 20160321
  Receipt Date: 20160706
  Transmission Date: 20161109
  Serious: Yes (Hospitalization)
  Sender: FDA-Public Use
  Company Number: US-ACTELION-A-US2016-133252

PATIENT
  Age: 19 Year
  Sex: Male

DRUGS (4)
  1. COUMADIN [Concomitant]
     Active Substance: WARFARIN SODIUM
  2. VELETRI [Suspect]
     Active Substance: EPOPROSTENOL
     Indication: PULMONARY ARTERIAL HYPERTENSION
     Dosage: 64 NG/KG, PER MIN
     Route: 042
     Dates: start: 20151012
  3. ADCIRCA [Concomitant]
     Active Substance: TADALAFIL
  4. OPSUMIT [Suspect]
     Active Substance: MACITENTAN
     Indication: PULMONARY ARTERIAL HYPERTENSION
     Dosage: 10 MG, QD
     Route: 048
     Dates: start: 20150312

REACTIONS (3)
  - Device related infection [Unknown]
  - Catheter placement [Unknown]
  - Staphylococcal bacteraemia [Unknown]

NARRATIVE: CASE EVENT DATE: 20160317
